FAERS Safety Report 12979023 (Version 1)
Quarter: 2016Q4

REPORT INFORMATION
  Report Type: Spontaneous
  Country: DE (occurrence: DE)
  Receive Date: 20161128
  Receipt Date: 20161128
  Transmission Date: 20170207
  Serious: Yes (Other)
  Sender: FDA-Public Use
  Company Number: DE-MYLANLABS-2016M1051064

PATIENT

DRUGS (3)
  1. ATORVASTATIN RATIOPHARM [Suspect]
     Active Substance: ATORVASTATIN
     Indication: PRODUCT USED FOR UNKNOWN INDICATION
     Dosage: 200 MG, UNK
     Route: 048
     Dates: start: 20161118
  2. TELMISARTAN MYLAN 40 MG TABLETTEN [Suspect]
     Active Substance: TELMISARTAN
     Indication: PRODUCT USED FOR UNKNOWN INDICATION
     Dosage: 560 MG, UNK
     Route: 048
     Dates: start: 20161118
  3. SERTRALINE [Suspect]
     Active Substance: SERTRALINE HYDROCHLORIDE
     Indication: PRODUCT USED FOR UNKNOWN INDICATION
     Dosage: 500 MG, UNK
     Route: 048
     Dates: start: 20161118

REACTIONS (7)
  - Nausea [Unknown]
  - Dizziness [Unknown]
  - Suicide attempt [Unknown]
  - Systolic hypertension [Unknown]
  - Vomiting [Unknown]
  - Intentional overdose [None]
  - Intentional overdose [Unknown]

NARRATIVE: CASE EVENT DATE: 20161118
